FAERS Safety Report 14206983 (Version 1)
Quarter: 2017Q4

REPORT INFORMATION
  Report Type: Spontaneous
  Country: US (occurrence: US)
  Receive Date: 20171121
  Receipt Date: 20171121
  Transmission Date: 20180321
  Serious: Yes (Death)
  Sender: FDA-Public Use
  Company Number: US-THE MEDICINES COMPANY-US-MDCO-16-00517

PATIENT
  Sex: Male
  Weight: 92.8 kg

DRUGS (5)
  1. BRILINTA [Suspect]
     Active Substance: TICAGRELOR
     Indication: PRODUCT USED FOR UNKNOWN INDICATION
  2. ASA [Suspect]
     Active Substance: ASPIRIN
     Indication: PRODUCT USED FOR UNKNOWN INDICATION
     Route: 048
  3. BIVALIRUDIN-SANDOZ [Suspect]
     Active Substance: BIVALIRUDIN
     Dosage: 1.75 MG/KG/HR OR 32.48 MLS/HR
     Route: 041
  4. BIVALIRUDIN-SANDOZ [Suspect]
     Active Substance: BIVALIRUDIN
     Dosage: 1.75 MG/KG/HR OR 32.48 MLS/HR
     Route: 041
  5. BIVALIRUDIN-SANDOZ [Suspect]
     Active Substance: BIVALIRUDIN
     Indication: PRODUCT USED FOR UNKNOWN INDICATION
     Route: 040

REACTIONS (1)
  - Thrombosis [Fatal]
